FAERS Safety Report 18522426 (Version 1)
Quarter: 2020Q4

REPORT INFORMATION
  Report Type: Report from Study
  Country: BR (occurrence: BR)
  Receive Date: 20201119
  Receipt Date: 20201119
  Transmission Date: 20210114
  Serious: Yes (Hospitalization, Disabling)
  Sender: FDA-Public Use
  Company Number: NVSC2020BR305590

PATIENT
  Age: 41 Year
  Sex: Female

DRUGS (1)
  1. DIOVAN [Suspect]
     Active Substance: VALSARTAN
     Indication: HYPERTENSION
     Dosage: 320 MG, UNKNOWN
     Route: 065
     Dates: start: 20190702

REACTIONS (10)
  - Cerebrovascular accident [Recovered/Resolved with Sequelae]
  - Nervousness [Recovering/Resolving]
  - Stress [Recovering/Resolving]
  - Oral disorder [Recovered/Resolved with Sequelae]
  - Akinesia [Recovered/Resolved with Sequelae]
  - Headache [Recovered/Resolved]
  - Muscular weakness [Unknown]
  - Speech disorder [Unknown]
  - Joint dislocation [Unknown]
  - Malaise [Recovering/Resolving]

NARRATIVE: CASE EVENT DATE: 20200807
